FAERS Safety Report 7683076-8 (Version None)
Quarter: 2011Q3

REPORT INFORMATION
  Report Type: 
  Country: None (occurrence: None)
  Receive Date: 20110815
  Receipt Date: 20110803
  Transmission Date: 20111222
  Serious: Yes (Other)
  Sender: FDA-Public Use
  Company Number: US-JNJFOC-20110803482

PATIENT
  Age: 40 Year
  Sex: Female

DRUGS (4)
  1. BENADRYL [Concomitant]
     Indication: PREMEDICATION
  2. SOLU-MEDROL [Concomitant]
     Indication: PREMEDICATION
     Dates: start: 20110701
  3. AZATHIOPRINE [Concomitant]
     Indication: PRODUCT USED FOR UNKNOWN INDICATION
     Dates: end: 20110701
  4. REMICADE [Suspect]
     Indication: COLITIS ULCERATIVE
     Route: 042
     Dates: start: 20110701

REACTIONS (6)
  - STRESS [None]
  - DIARRHOEA [None]
  - HEADACHE [None]
  - ANXIETY [None]
  - MIGRAINE [None]
  - FULL BLOOD COUNT DECREASED [None]
